FAERS Safety Report 15946292 (Version 5)
Quarter: 2019Q2

REPORT INFORMATION
  Report Type: Spontaneous
  Country: US (occurrence: US)
  Receive Date: 20190212
  Receipt Date: 20190502
  Transmission Date: 20190711
  Serious: Yes (Death, Other)
  Sender: FDA-Public Use
  Company Number: US-GLAXOSMITHKLINE-US2019GSK025083

PATIENT
  Sex: Male

DRUGS (3)
  1. PREVACID [Suspect]
     Active Substance: LANSOPRAZOLE
     Indication: GASTROOESOPHAGEAL REFLUX DISEASE
     Dosage: 30 MG, ONCE DAILY
     Route: 065
  2. OMEPRAZOLE. [Suspect]
     Active Substance: OMEPRAZOLE
     Indication: PRODUCT USED FOR UNKNOWN INDICATION
     Dosage: 20 MG, QD
     Route: 048
  3. PANTOPRAZOLE [Suspect]
     Active Substance: PANTOPRAZOLE
     Indication: GASTROOESOPHAGEAL REFLUX DISEASE
     Dosage: 40 MG, UNK
     Route: 065

REACTIONS (11)
  - Chronic kidney disease [Unknown]
  - Acute kidney injury [Unknown]
  - Adverse event [Unknown]
  - Blood creatinine increased [Unknown]
  - Proteinuria [Unknown]
  - Renal colic [Unknown]
  - Nephrolithiasis [Unknown]
  - Pyelonephritis [Unknown]
  - Death [Fatal]
  - Renal failure [Unknown]
  - Renal pain [Unknown]
